FAERS Safety Report 6496818-4 (Version None)
Quarter: 2009Q4

REPORT INFORMATION
  Report Type: 
  Country: None (occurrence: None)
  Receive Date: 20091125
  Receipt Date: 20090409
  Transmission Date: 20100525
  Serious: Yes (Hospitalization)
  Sender: FDA-Public Use
  Company Number: 2009BH005769

PATIENT
  Age: 72 Year
  Sex: Female

DRUGS (2)
  1. DIANEAL [Suspect]
     Indication: PERITONEAL DIALYSIS
     Dosage: 12.5 L; EVERY DAY; IP
     Route: 033
     Dates: start: 20060101, end: 20081201
  2. HEPARIN [Concomitant]

REACTIONS (1)
  - PERITONITIS [None]
